FAERS Safety Report 10793147 (Version 1)
Quarter: 2015Q1

REPORT INFORMATION
  Report Type: Report from Study
  Country: KR (occurrence: KR)
  Receive Date: 20150213
  Receipt Date: 20150213
  Transmission Date: 20150721
  Serious: Yes (Hospitalization)
  Sender: FDA-Public Use
  Company Number: KR-KOWA-2015S1000100

PATIENT
  Age: 69 Year
  Sex: Male

DRUGS (13)
  1. RIVOTRIL [Concomitant]
     Active Substance: CLONAZEPAM
     Indication: CEREBRAL INFARCTION
     Dates: start: 20120129
  2. INDENOL [Concomitant]
     Active Substance: PROPRANOLOL HYDROCHLORIDE
     Indication: HYPERTENSION
     Dates: start: 20130522
  3. PEPTAZOLE /01263204/ [Concomitant]
     Indication: GASTROOESOPHAGEAL REFLUX DISEASE
     Dates: start: 20131204
  4. PREGREL [Concomitant]
     Indication: CEREBRAL INFARCTION
     Dates: start: 20150114
  5. NEBILET [Concomitant]
     Active Substance: NEBIVOLOL
     Indication: HYPERTENSION
     Dates: start: 20140205
  6. PK-MERZ [Concomitant]
     Active Substance: AMANTADINE
     Indication: CEREBRAL INFARCTION
     Dates: start: 20140827
  7. PENID [Concomitant]
     Indication: DEPRESSION
     Dates: start: 20120129
  8. EXELON [Concomitant]
     Active Substance: RIVASTIGMINE TARTRATE
     Indication: DEMENTIA
     Dates: start: 20130724, end: 20140408
  9. SIRDALUD [Concomitant]
     Active Substance: TIZANIDINE
     Indication: CEREBRAL INFARCTION
     Dates: start: 20120129
  10. LIVALO [Suspect]
     Active Substance: PITAVASTATIN CALCIUM
     Indication: HYPERLIPIDAEMIA
     Route: 048
     Dates: start: 20140205, end: 20150114
  11. PLATLESS [Concomitant]
     Indication: CEREBRAL INFARCTION
     Dates: start: 20120226, end: 20141225
  12. EBIXA [Concomitant]
     Active Substance: MEMANTINE HYDROCHLORIDE
     Indication: DEMENTIA
     Dates: start: 20140409
  13. PK-MERZ [Concomitant]
     Active Substance: AMANTADINE
     Indication: CEREBRAL INFARCTION
     Dates: start: 20130220, end: 20130520

REACTIONS (4)
  - Rhabdomyolysis [Recovered/Resolved]
  - Acute kidney injury [Recovered/Resolved]
  - Heart injury [Recovered/Resolved]
  - Pyrexia [Recovered/Resolved]

NARRATIVE: CASE EVENT DATE: 20140805
